FAERS Safety Report 21647081 (Version 1)
Quarter: 2022Q4

REPORT INFORMATION
  Report Type: Spontaneous
  Country: CA (occurrence: CA)
  Receive Date: 20221127
  Receipt Date: 20221127
  Transmission Date: 20230113
  Serious: Yes (Hospitalization, Other)
  Sender: FDA-Public Use
  Company Number: CA-JNJFOC-20221154781

PATIENT
  Age: 25 Year
  Sex: Male
  Weight: 74 kg

DRUGS (4)
  1. REMICADE [Suspect]
     Active Substance: INFLIXIMAB
     Indication: Crohn^s disease
     Route: 041
  2. REMICADE [Suspect]
     Active Substance: INFLIXIMAB
     Route: 041
  3. REMICADE [Suspect]
     Active Substance: INFLIXIMAB
     Route: 041
  4. VAXZEVRIA [Suspect]
     Active Substance: AZD-1222
     Indication: Immunisation
     Dosage: VIAL CONTAINS 10 DOSES OF 0.5ML
     Route: 030

REACTIONS (3)
  - Clostridium difficile infection [Unknown]
  - Crohn^s disease [Unknown]
  - Illness [Unknown]
